FAERS Safety Report 17471643 (Version 2)
Quarter: 2020Q1

REPORT INFORMATION
  Report Type: Spontaneous
  Country: US (occurrence: US)
  Receive Date: 20200228
  Receipt Date: 20200311
  Transmission Date: 20200409
  Serious: No
  Sender: FDA-Public Use
  Company Number: US-JNJFOC-20200216647

PATIENT
  Age: 4 Year
  Sex: Female
  Weight: 18.16 kg

DRUGS (1)
  1. CHILDRENS MOTRIN [Suspect]
     Active Substance: IBUPROFEN
     Indication: PYREXIA
     Dosage: HALF OF RECOMENDED ONE TIME ONLY
     Route: 048
     Dates: start: 20200209

REACTIONS (4)
  - Abdominal pain upper [Unknown]
  - Vomiting [Unknown]
  - Incorrect dose administered [Unknown]
  - Urticaria [Unknown]

NARRATIVE: CASE EVENT DATE: 20200209
